FAERS Safety Report 4298684-4 (Version None)
Quarter: 2004Q1

REPORT INFORMATION
  Report Type: 
  Country: None (occurrence: None)
  Receive Date: 20040218
  Receipt Date: 20030709
  Transmission Date: 20041129
  Serious: No
  Sender: FDA-Public Use
  Company Number: US-GLAXOSMITHKLINE-A0416070A

PATIENT
  Age: 43 Year
  Sex: Male

DRUGS (1)
  1. PAXIL [Suspect]
     Indication: ANXIETY
     Dosage: 20MG AT NIGHT
     Route: 048
     Dates: start: 20030501

REACTIONS (3)
  - PRURITUS [None]
  - RASH [None]
  - RASH PAPULAR [None]
